FAERS Safety Report 5631899-9 (Version None)
Quarter: 2008Q1

REPORT INFORMATION
  Report Type: 
  Country: None (occurrence: None)
  Receive Date: 20080220
  Receipt Date: 20080206
  Transmission Date: 20080703
  Serious: Yes (Life-Threatening)
  Sender: FDA-Public Use
  Company Number: JP-WYE-H01916908

PATIENT
  Sex: Male
  Weight: 32 kg

DRUGS (19)
  1. AMIODARONE HCL [Suspect]
     Indication: VENTRICULAR TACHYCARDIA
     Dosage: 5 ML/MIN
     Route: 042
     Dates: start: 20070820, end: 20070820
  2. AMIODARONE HCL [Suspect]
     Dosage: 16 ML/HOUR
     Route: 042
     Dates: start: 20070820, end: 20070820
  3. AMIODARONE HCL [Suspect]
     Dosage: 8 ML/HR
     Route: 042
     Dates: start: 20070820, end: 20070823
  4. AMIODARONE HCL [Suspect]
     Dosage: 4 ML/HOUR
     Route: 042
     Dates: start: 20070823, end: 20070824
  5. CIBENOL [Concomitant]
     Route: 042
     Dates: start: 20070820
  6. INOVAN [Concomitant]
     Indication: VENTRICULAR TACHYCARDIA
     Dosage: 216 MG TO 0 MG
     Route: 041
     Dates: start: 20070816, end: 20070822
  7. DOBUTAMINE HYDROCHLORIDE [Concomitant]
     Indication: VENTRICULAR TACHYCARDIA
     Dosage: 360 MG TO 576 MG DAILY
     Route: 041
     Dates: start: 20070816, end: 20070820
  8. DOBUTAMINE HYDROCHLORIDE [Concomitant]
     Dosage: 576 TO 0 MG
     Route: 041
     Dates: start: 20070820, end: 20070910
  9. MILRILA [Concomitant]
     Dosage: 12 TO 22.5 MG EVERY DAY
     Route: 041
     Dates: start: 20070816, end: 20070820
  10. AMINOACETIC ACID/IMMUNOGLOBULIN HUMAN NORMAL/MALTOSE [Suspect]
     Dosage: 5 GRAM/FREQUENCY NOT PROVIDED
     Route: 065
     Dates: start: 20070824, end: 20070826
  11. LASIX [Concomitant]
     Indication: VENTRICULAR TACHYCARDIA
     Dosage: 40 TO 80 MG THREE TIMES PER DAY
     Route: 048
     Dates: start: 20070820, end: 20070903
  12. LASIX [Concomitant]
     Route: 048
     Dates: start: 20070903
  13. ASPIRIN [Concomitant]
     Indication: VENTRICULAR TACHYCARDIA
     Dosage: 100/UNITS AND FREQUENCY NOT PROVIDED
     Route: 048
     Dates: start: 20070820
  14. WARFARIN SODIUM [Concomitant]
     Dosage: 0.5 TO 2 MG DAILY
     Route: 048
     Dates: start: 20070820
  15. MAGNESIUM OXIDE [Concomitant]
     Indication: VENTRICULAR TACHYCARDIA
     Route: 048
     Dates: start: 20070820
  16. TETRAMIDE [Concomitant]
     Indication: VENTRICULAR TACHYCARDIA
     Dosage: 10 MG AS NEEDED
     Route: 048
     Dates: start: 20070820
  17. AMIODARONE HCL [Concomitant]
     Route: 048
     Dates: start: 20070820, end: 20070826
  18. AMIODARONE HCL [Concomitant]
     Route: 048
     Dates: start: 20070827
  19. CARPERITIDE [Concomitant]
     Indication: VENTRICULAR TACHYCARDIA
     Dosage: 4 MG/FREQUENCY NOT PROVIDED
     Route: 041
     Dates: start: 20070820, end: 20070829

REACTIONS (1)
  - PNEUMONIA [None]
